FAERS Safety Report 4350782-2 (Version None)
Quarter: 2004Q2

REPORT INFORMATION
  Report Type: 
  Country: None (occurrence: None)
  Receive Date: 20040427
  Receipt Date: 20040421
  Transmission Date: 20050107
  Serious: Yes (Hospitalization, Disabling)
  Sender: FDA-Public Use
  Company Number: HQ8601620NOV2001

PATIENT
  Age: 47 Year
  Sex: Male
  Weight: 74.91 kg

DRUGS (31)
  1. DIMETAPP [Suspect]
     Dosage: ORAL
     Route: 048
  2. PHENYLPROPANOLAMINE HCL [Suspect]
     Dosage: ORAL
     Route: 048
  3. ALKA-SELTZER PLUS (ACETYLSALICYLIC ACID/CHLORPHENAMINE MALEATE/PHENYLP [Suspect]
     Dosage: ORAL
     Route: 048
  4. BANEX-LA (GUAIFENESIN/PHENYLPROPANOLAMINE HYDROCHLORIDE,) [Suspect]
     Dosage: ORAL
     Route: 048
  5. BC (ACETYLSALICYLIC ACID/CAFFEINE/SALICYLAMIDE, POWDER) [Suspect]
     Dosage: ORAL
     Route: 048
     Dates: start: 19990118
  6. BROMANATE DC (BROMPHENIRAMINE MALEATE/CODEINE PHOSPHATE/PHENYLPROOANOL [Suspect]
     Dosage: ORAL
     Route: 048
  7. CALDOMINE-DH (HYDROCODONE BITARTRATE/MEPRAMINE MALEATE/PHENIRAMINE MAL [Suspect]
     Dosage: ORAL
     Route: 048
  8. CHLORPHENIRAMINE MALEATE [Suspect]
     Dosage: ORAL
     Route: 048
  9. CHLOR-TRIMETON [Suspect]
  10. COMTREX (CHLORPHENAMINE MALEATE/DEXTROMETHORPHAN HYDROBROMIDE/PARACETA [Suspect]
     Dosage: ORAL
     Route: 048
  11. CORICIDIN [Suspect]
     Dosage: ORAL
     Route: 048
  12. COUGH AND COLD PREPARATIONS (COUGH AND COLD PREPARATIONS, ) [Suspect]
     Dosage: ORAL
     Route: 048
  13. COUGH AND COLD PREPARATIONS (COUGH AND COLD PREPARATIONS, ) [Suspect]
     Dosage: ORAL
  14. COUGH AND COLD PREPARATIONS (COUGH AND COLD PREPARATIONS, ) [Suspect]
     Dosage: ORAL
     Route: 048
  15. COUGH AND COLD PREPARATIONS (COUGH AND COLD PREPARATIONS, ) [Suspect]
     Dosage: ORAL
     Route: 048
  16. COUGH AND COLD PREPARATIONS (COUGH AND COLD PREPARATIONS, ) [Suspect]
     Dosage: ORAL
     Route: 048
  17. COUGH AND COLD PREPARATIONS (COUGH AND COLD PREPARATIONS, ) [Suspect]
     Dosage: ORAL
     Route: 048
  18. COUGH AND COLD PREPARATIONS (COUGH AND COLD PREPARATIONS, ) [Suspect]
     Dosage: ORAL
     Route: 048
  19. COUGH AND COLD PREPARATIONS (COUGH AND COLD PREPARATIONS, ) [Suspect]
     Dosage: ORAL
     Route: 048
  20. COUGH AND COLD PREPARATIONS (COUGH AND COLD PREPARATIONS, ) [Suspect]
     Dosage: ORAL
     Route: 048
  21. COUGH AND COLD PREPARATIONS (COUGH AND COLD PREPARATIONS, ) [Suspect]
     Dosage: ORAL
     Route: 048
  22. COUGH AND COLD PREPARATIONS (COUGH AND COLD PREPARATIONS, ) [Suspect]
     Dosage: ORAL
     Route: 048
  23. COUGH AND COLD PREPARATIONS (COUGH AND COLD PREPARATIONS, ) [Suspect]
     Dosage: ORAL
     Route: 048
  24. COUGH AND COLD PREPARATIONS (COUGH AND COLD PREPARATIONS, ) [Suspect]
     Dosage: ORAL
     Route: 048
  25. COUGH AND COLD PREPARATIONS (COUGH AND COLD PREPARATIONS, ) [Suspect]
     Dosage: ORAL
     Route: 048
  26. DEMAZIN [Suspect]
     Dosage: ORAL
     Route: 048
  27. DEXATRIM (CAFFEINE/PHENYLPROPANOLAMINE HYDROCHLORIDE, ) [Suspect]
  28. HISTALET FORTE (CHLORPHENAMINE MALEATE/MEPYRAMINE MALEATE/PHENLEPHRINE [Suspect]
     Dosage: ORAL
     Route: 048
  29. HYCOMINE (HYDROCODONE BITARTRATE/PHENYLPROPNOLAMINE HYDROCHLORIDE, ) [Suspect]
     Dosage: ORAL
     Route: 048
  30. ROBITUSSIN CF (GUAIFENESIN/DEXTROMETHORPHAN/PHENYLPROPANOLAMINE, SYRUP [Suspect]
     Dosage: ORAL
     Route: 004
  31. TRIAMINIC SRT [Suspect]
     Dosage: ORAL
     Route: 048

REACTIONS (6)
  - BLOOD PRESSURE INCREASED [None]
  - CEREBRAL ISCHAEMIA [None]
  - CEREBROVASCULAR ACCIDENT [None]
  - ELECTROCARDIOGRAM ST-T CHANGE [None]
  - HEADACHE [None]
  - VENTRICULAR HYPERTROPHY [None]
